FAERS Safety Report 6097145-X (Version None)
Quarter: 2009Q1

REPORT INFORMATION
  Report Type: 
  Country: None (occurrence: None)
  Receive Date: 20090227
  Receipt Date: 20090219
  Transmission Date: 20090719
  Serious: Yes (Other)
  Sender: FDA-Public Use
  Company Number: US-WYE-H08334909

PATIENT
  Sex: Female
  Weight: 46.31 kg

DRUGS (4)
  1. PREMARIN [Suspect]
  2. PROVERA [Suspect]
  3. PREMARIN [Suspect]
  4. DEPO-PROVERA [Suspect]

REACTIONS (1)
  - ENDOMETRIAL CANCER METASTATIC [None]
